FAERS Safety Report 8214766-6 (Version None)
Quarter: 2012Q1

REPORT INFORMATION
  Report Type: 
  Country: None (occurrence: None)
  Receive Date: 20120316
  Receipt Date: 20120302
  Transmission Date: 20120608
  Serious: Yes (Hospitalization)
  Sender: FDA-Public Use
  Company Number: NO-ELI_LILLY_AND_COMPANY-NO201111005909

PATIENT
  Sex: Male

DRUGS (3)
  1. CLONAZEPAM [Concomitant]
     Indication: ANXIETY
     Dosage: 2 MG, UNK
     Route: 048
  2. OLANZAPINE [Suspect]
     Indication: SCHIZOPHRENIA
     Dosage: 210 MG, EVERY 14 DAYS
     Dates: start: 20110703
  3. AMPHETAMINE AND DEXTROAMPHETAMINE SALTS [Concomitant]

REACTIONS (10)
  - DIZZINESS [None]
  - IRRITABILITY [None]
  - DISORIENTATION [None]
  - ATAXIA [None]
  - NAUSEA [None]
  - SOMNOLENCE [None]
  - SEDATION [None]
  - AGITATION [None]
  - CONFUSIONAL STATE [None]
  - AGGRESSION [None]
